FAERS Safety Report 17286023 (Version 2)
Quarter: 2025Q2

REPORT INFORMATION
  Report Type: Spontaneous
  Country: US (occurrence: US)
  Receive Date: 20200118
  Receipt Date: 20250621
  Transmission Date: 20250717
  Serious: Yes (Life-Threatening, Other)
  Sender: AUROBINDO
  Company Number: US-MLMSERVICE-20200103-2109603-1

PATIENT
  Age: 51 Year
  Sex: Female

DRUGS (3)
  1. SULFAMETHOXAZOLE\TRIMETHOPRIM [Suspect]
     Active Substance: SULFAMETHOXAZOLE\TRIMETHOPRIM
     Indication: Pneumocystis jirovecii pneumonia
     Route: 065
  2. OXYGEN [Concomitant]
     Active Substance: OXYGEN
     Indication: Oxygen therapy
     Route: 065
  3. METHYLENE BLUE [Concomitant]
     Active Substance: METHYLENE BLUE
     Indication: Methaemoglobinaemia
     Route: 065

REACTIONS (1)
  - Treatment failure [Unknown]
